FAERS Safety Report 6817148-4 (Version None)
Quarter: 2010Q3

REPORT INFORMATION
  Report Type: 
  Country: None (occurrence: None)
  Receive Date: 20100706
  Receipt Date: 20100623
  Transmission Date: 20110219
  Serious: Yes (Other)
  Sender: FDA-Public Use
  Company Number: US-BAYER-200940118NA

PATIENT
  Age: 29 Year
  Sex: Female
  Weight: 64 kg

DRUGS (1)
  1. YAZ [Suspect]
     Indication: CONTRACEPTION
     Route: 048
     Dates: start: 20071201, end: 20091101

REACTIONS (1)
  - GALLBLADDER DISORDER [None]
